FAERS Safety Report 9310940 (Version 1)
Quarter: 2013Q2

REPORT INFORMATION
  Report Type: Spontaneous
  Country: US (occurrence: None)
  Receive Date: 20130523
  Receipt Date: 20130523
  Transmission Date: 20140414
  Serious: Yes (Other)
  Sender: FDA-Public Use
  Company Number: None

PATIENT
  Age: 57 Year
  Sex: Male
  Weight: 78.47 kg

DRUGS (2)
  1. SUTENT [Suspect]
     Indication: RENAL CELL CARCINOMA
     Dosage: 12.5 MG DAILY BY MOUTH
     Route: 048
     Dates: start: 20100501
  2. SUTENT [Suspect]
     Dosage: 25 MG DAILY BY MOUTH
     Route: 048

REACTIONS (3)
  - Abdominal pain [None]
  - Weight decreased [None]
  - Haematemesis [None]
